FAERS Safety Report 20170183 (Version 2)
Quarter: 2024Q2

REPORT INFORMATION
  Report Type: Spontaneous
  Country: HR (occurrence: HR)
  Receive Date: 20211210
  Receipt Date: 20240412
  Transmission Date: 20240716
  Serious: Yes (Other)
  Sender: FDA-Public Use
  Company Number: None

PATIENT
  Sex: Female

DRUGS (8)
  1. ACETAMINOPHEN\TRAMADOL [Suspect]
     Active Substance: ACETAMINOPHEN\TRAMADOL
     Indication: Product used for unknown indication
     Dosage: 10 DOSAGE FORM, 1/DAY
     Route: 048
     Dates: start: 20210726, end: 20210726
  2. XANAX [Suspect]
     Active Substance: ALPRAZOLAM
     Indication: Product used for unknown indication
     Dosage: 50 DOSAGE FORM, 1/DAY
     Route: 048
     Dates: start: 20210726, end: 20210726
  3. ALPRAZOLAM [Suspect]
     Active Substance: ALPRAZOLAM
     Indication: Product used for unknown indication
     Dosage: 30 DOSAGE FORM, 1/DAY
     Route: 048
     Dates: start: 20210726, end: 20210726
  4. CLOZAPINE [Suspect]
     Active Substance: CLOZAPINE
     Indication: Product used for unknown indication
     Dosage: 4 DOSAGE FORM, 1/DAY
     Route: 048
     Dates: start: 20210726, end: 20210726
  5. ATENOLOL [Suspect]
     Active Substance: ATENOLOL
     Indication: Product used for unknown indication
     Dosage: 30 DOSAGE FORM, 1/DAY, ATENOLOL PLIVA
     Route: 048
     Dates: start: 20210726, end: 20210726
  6. VENLAFAXINE HYDROCHLORIDE [Suspect]
     Active Substance: VENLAFAXINE HYDROCHLORIDE
     Indication: Product used for unknown indication
     Dosage: DOSAGE TEXT: 54 VELAFAX
     Route: 048
     Dates: start: 20210726, end: 20210726
  7. NORMABEL [Suspect]
     Active Substance: DIAZEPAM
     Indication: Product used for unknown indication
     Dosage: UNK, 1/DAY
     Route: 048
     Dates: start: 20210726, end: 20210726
  8. LYRICA [Suspect]
     Active Substance: PREGABALIN
     Indication: Product used for unknown indication
     Dosage: 43 DOSAGE FORM, 1/DAY
     Route: 048
     Dates: start: 20210726, end: 20210726

REACTIONS (4)
  - Toxicity to various agents [Unknown]
  - Intentional overdose [Unknown]
  - Suicide attempt [Unknown]
  - Coma [Unknown]

NARRATIVE: CASE EVENT DATE: 20210726
